FAERS Safety Report 5259212-X (Version None)
Quarter: 2007Q1

REPORT INFORMATION
  Report Type: 
  Country: None (occurrence: None)
  Receive Date: 20070308
  Receipt Date: 20070226
  Transmission Date: 20070707
  Serious: Yes (Hospitalization, Other)
  Sender: FDA-Public Use
  Company Number: PHEH2007US02570

PATIENT
  Age: 56 Year
  Sex: Female
  Weight: 53.514 kg

DRUGS (5)
  1. ESTRADERM [Suspect]
     Indication: OSTEOPOROSIS PROPHYLAXIS
     Dosage: 0.05 MG, UNK
     Route: 062
     Dates: start: 19970306, end: 19971121
  2. PREMARIN [Suspect]
     Indication: OSTEOPOROSIS PROPHYLAXIS
     Dosage: 0.05 MG, QD
     Route: 048
     Dates: start: 19800101, end: 19900101
  3. AMITRIPTYLINE HCL [Concomitant]
  4. ZYRTEC [Concomitant]
  5. CLIMARA [Suspect]
     Indication: HOT FLUSH
     Dosage: 0.05 MG, UNK
     Route: 062
     Dates: start: 19980112, end: 19980330

REACTIONS (38)
  - ADENOMA BENIGN [None]
  - ANAL HAEMORRHAGE [None]
  - BASAL CELL CARCINOMA [None]
  - BENIGN TUMOUR EXCISION [None]
  - BREAST CANCER [None]
  - BREAST CYST [None]
  - BREAST TENDERNESS [None]
  - BURSA DISORDER [None]
  - CHRONIC OBSTRUCTIVE PULMONARY DISEASE [None]
  - CONVULSION [None]
  - DISEASE PROGRESSION [None]
  - DYSARTHRIA [None]
  - FALL [None]
  - FIBROADENOMA OF BREAST [None]
  - FIBROCYSTIC BREAST DISEASE [None]
  - HAEMATOCHEZIA [None]
  - HOT FLUSH [None]
  - HYPOREFLEXIA [None]
  - HYSTERECTOMY [None]
  - INJURY [None]
  - INSOMNIA [None]
  - LIPOMA [None]
  - MASTECTOMY [None]
  - MENOPAUSE [None]
  - MENTAL DISORDER [None]
  - MITRAL VALVE PROLAPSE [None]
  - NASAL SEPTUM DEVIATION [None]
  - OSTEOPOROSIS [None]
  - PAIN [None]
  - SENSATION OF HEAVINESS [None]
  - SENSORY DISTURBANCE [None]
  - SKIN LESION [None]
  - SKIN NEOPLASM EXCISION [None]
  - SOMNOLENCE [None]
  - SPINAL OSTEOARTHRITIS [None]
  - TRIGGER FINGER [None]
  - UTERINE LEIOMYOMA [None]
  - VERTIGO [None]
